FAERS Safety Report 4348981-9 (Version None)
Quarter: 2004Q2

REPORT INFORMATION
  Report Type: 
  Country: None (occurrence: None)
  Receive Date: 20040427
  Receipt Date: 20040427
  Transmission Date: 20050107
  Serious: Yes (Other)
  Sender: FDA-Public Use
  Company Number: None

PATIENT
  Sex: Female
  Weight: 64.8644 kg

DRUGS (1)
  1. TRI-NESSA (GENERIC ORTHOTRICYCLEN [Suspect]
     Dosage: ONE TABLET PO DAILY
     Route: 048
     Dates: start: 20040101

REACTIONS (4)
  - DRUG EFFECT DECREASED [None]
  - HAEMORRHAGE [None]
  - METRORRHAGIA [None]
  - PHARMACEUTICAL PRODUCT COMPLAINT [None]
